FAERS Safety Report 4846070-8 (Version None)
Quarter: 2005Q4

REPORT INFORMATION
  Report Type: 
  Country: None (occurrence: None)
  Receive Date: 20051202
  Receipt Date: 20051202
  Transmission Date: 20060501
  Serious: No
  Sender: FDA-Public Use
  Company Number: None

PATIENT
  Age: 47 Year
  Sex: Male
  Weight: 96.1626 kg

DRUGS (2)
  1. LESCOL [Suspect]
     Indication: BLOOD CHOLESTEROL INCREASED
     Dosage: 1X  DAILY  PO
     Route: 048
     Dates: start: 20051103, end: 20051120
  2. ZETIA [Suspect]
     Indication: BLOOD CHOLESTEROL INCREASED
     Dosage: 10 MG   1X DAILY   PO
     Route: 048
     Dates: start: 20051103, end: 20051120

REACTIONS (1)
  - MYALGIA [None]
